FAERS Safety Report 7230359-1 (Version None)
Quarter: 2011Q1

REPORT INFORMATION
  Report Type: 
  Country: None (occurrence: None)
  Receive Date: 20110118
  Receipt Date: 20110112
  Transmission Date: 20110831
  Serious: Yes (Hospitalization)
  Sender: FDA-Public Use
  Company Number: US-PFIZER INC-2010182232

PATIENT
  Sex: Female
  Weight: 103.47 kg

DRUGS (8)
  1. ZITHROMAX [Concomitant]
  2. IRINOTECAN HCL [Suspect]
     Dosage: 100 MG/M2, UNK
     Route: 042
     Dates: start: 20110107
  3. ERBITUX [Suspect]
     Dosage: 200 MG/M2, UNK
     Route: 042
     Dates: start: 20110107
  4. ERBITUX [Suspect]
     Indication: COLORECTAL CANCER METASTATIC
     Dosage: 250 MG/M2, DAYS 1, 8 AND 15
     Route: 042
     Dates: start: 20101105, end: 20101217
  5. RAD 001 [Suspect]
     Dosage: 2.5 MG, 1X/DAY
     Route: 048
     Dates: start: 20110107
  6. IRINOTECAN HCL [Suspect]
     Indication: COLORECTAL CANCER METASTATIC
     Dosage: 125 MG/M2, DAYS 1 AND 8
     Route: 042
     Dates: start: 20101105, end: 20101210
  7. ZOSYN [Concomitant]
  8. RAD 001 [Suspect]
     Indication: COLORECTAL CANCER METASTATIC
     Dosage: DAILY
     Route: 048
     Dates: start: 20101105, end: 20101221

REACTIONS (1)
  - PNEUMONIA [None]
